FAERS Safety Report 4888627-4 (Version None)
Quarter: 2005Q4

REPORT INFORMATION
  Report Type: 
  Country: None (occurrence: None)
  Receive Date: 20051215
  Receipt Date: 20050308
  Transmission Date: 20060501
  Serious: Yes (Hospitalization)
  Sender: FDA-Public Use
  Company Number: 2005020748

PATIENT
  Age: 72 Year
  Sex: Male
  Weight: 127.0072 kg

DRUGS (4)
  1. BEXTRA [Suspect]
     Indication: ILL-DEFINED DISORDER
     Dosage: 10 MG (10 MG, 1 IN 1 D), ORAL
     Route: 048
     Dates: start: 20041107
  2. RANITIDINE HYDROCHLORIDE [Concomitant]
  3. REPAGLINIDE (REPAGLINIDE) [Concomitant]
  4. ATENOLOL [Concomitant]

REACTIONS (4)
  - CATHETER SITE HAEMORRHAGE [None]
  - CELLULITIS [None]
  - DEHYDRATION [None]
  - POOR VENOUS ACCESS [None]
